FAERS Safety Report 19226045 (Version 1)
Quarter: 2021Q2

REPORT INFORMATION
  Report Type: Other
  Country: US (occurrence: US)
  Receive Date: 20210505
  Receipt Date: 20210505
  Transmission Date: 20210717
  Serious: No
  Sender: FDA-Public Use
  Company Number: US-ROCHE-2667025

PATIENT
  Age: 64 Year
  Sex: Male

DRUGS (1)
  1. BEVACIZUMAB. [Suspect]
     Active Substance: BEVACIZUMAB
     Indication: ARTERIOVENOUS MALFORMATION
     Route: 065

REACTIONS (2)
  - Haemorrhage [Unknown]
  - Treatment failure [Unknown]
